FAERS Safety Report 16771805 (Version 2)
Quarter: 2019Q3

REPORT INFORMATION
  Report Type: Spontaneous
  Country: US (occurrence: US)
  Receive Date: 20190904
  Receipt Date: 20190909
  Transmission Date: 20191005
  Serious: Yes (Other)
  Sender: FDA-Public Use
  Company Number: US-PFIZER INC-2019376971

PATIENT
  Age: 68 Year
  Sex: Female
  Weight: 86 kg

DRUGS (3)
  1. FUROSEMIDE. [Concomitant]
     Active Substance: FUROSEMIDE
     Indication: FLUID RETENTION
     Dosage: 40 MG, DAILY
     Route: 048
  2. FUROSEMIDE. [Concomitant]
     Active Substance: FUROSEMIDE
     Indication: URINARY TRACT INFECTION
  3. GABAPENTIN. [Suspect]
     Active Substance: GABAPENTIN
     Indication: NEUROPATHY PERIPHERAL
     Dosage: 300 MG, 3X/DAY (1 IN THE MORNING AND 2 AT NIGHT)
     Route: 048
     Dates: end: 20190830

REACTIONS (19)
  - Cough [Unknown]
  - Nausea [Unknown]
  - Swollen tongue [Unknown]
  - Speech disorder [Unknown]
  - Contusion [Unknown]
  - Eye movement disorder [Unknown]
  - Fatigue [Unknown]
  - Somnolence [Unknown]
  - Haemorrhage [Unknown]
  - Tremor [Unknown]
  - Rash [Unknown]
  - Dyspnoea [Unknown]
  - Vomiting [Unknown]
  - Urinary tract infection [Unknown]
  - Hypertension [Unknown]
  - Peripheral swelling [Unknown]
  - Infection [Unknown]
  - Coordination abnormal [Unknown]
  - Asthenia [Unknown]

NARRATIVE: CASE EVENT DATE: 20190807
